FAERS Safety Report 9032132 (Version 4)
Quarter: 2013Q2

REPORT INFORMATION
  Report Type: Report from Study
  Country: US (occurrence: US)
  Receive Date: 20130122
  Receipt Date: 20130626
  Transmission Date: 20140414
  Serious: Yes (Hospitalization)
  Sender: FDA-Public Use
  Company Number: US-ACTELION-A-NJ2011-45919

PATIENT
  Age: 63 Year
  Sex: Male

DRUGS (3)
  1. TRACLEER [Suspect]
     Indication: PULMONARY ARTERIAL HYPERTENSION
     Dosage: UNK
     Route: 048
  2. REVATIO [Concomitant]
  3. ASPIRIN [Concomitant]

REACTIONS (8)
  - Fall [Unknown]
  - Dyspnoea [Unknown]
  - Respiratory arrest [Recovered/Resolved]
  - Endotracheal intubation [Recovered/Resolved]
  - Chronic obstructive pulmonary disease [Recovered/Resolved]
  - Hyperkalaemia [Recovered/Resolved]
  - Urinary tract infection [Recovered/Resolved]
  - Dyspnoea exertional [Recovered/Resolved]
